FAERS Safety Report 5128989-6 (Version None)
Quarter: 2006Q4

REPORT INFORMATION
  Report Type: 
  Country: None (occurrence: None)
  Receive Date: 20061011
  Receipt Date: 20060925
  Transmission Date: 20070319
  Serious: Yes (Death)
  Sender: FDA-Public Use
  Company Number: 229972

PATIENT
  Age: 43 Year
  Sex: Male
  Weight: 63.5 kg

DRUGS (8)
  1. AVASTIN [Suspect]
     Indication: LIP AND/OR ORAL CAVITY CANCER
     Dosage: 10 MG/KG, Q2W, INTRAVENOUS
     Route: 042
     Dates: start: 20040919, end: 20041129
  2. FLUOROURACIL [Concomitant]
  3. HYDROXYUREA [Concomitant]
  4. ZOLOFT [Concomitant]
  5. DIFLUCAN [Concomitant]
  6. COLACE (DOCUSATE SODIUM) [Concomitant]
  7. ELAVIL [Concomitant]
  8. FENTANYL PATCH (FENTANYL CITRATE) [Concomitant]

REACTIONS (7)
  - ARTERIAL RUPTURE [None]
  - CAROTID ARTERY DISSECTION [None]
  - CEREBRAL ARTERY OCCLUSION [None]
  - CEREBRAL INFARCTION [None]
  - CEREBROVASCULAR ACCIDENT [None]
  - POST PROCEDURAL COMPLICATION [None]
  - POST PROCEDURAL HAEMORRHAGE [None]
